FAERS Safety Report 9424263 (Version 1)
Quarter: 2013Q3

REPORT INFORMATION
  Report Type: Spontaneous
  Country: US (occurrence: US)
  Receive Date: 20130729
  Receipt Date: 20130729
  Transmission Date: 20140515
  Serious: Yes (Other)
  Sender: FDA-Public Use
  Company Number: US-AMGEN-USASP2013051939

PATIENT
  Age: 56 Year
  Sex: Female

DRUGS (5)
  1. NEULASTA [Suspect]
     Indication: PRODUCT USED FOR UNKNOWN INDICATION
     Dosage: UNK
     Route: 065
  2. DOXORUBICIN [Concomitant]
     Indication: BREAST CANCER STAGE II
     Dosage: UNK
  3. TAXOL [Concomitant]
     Indication: BREAST CANCER STAGE II
     Dosage: UNK
  4. DEXAMETHASONE [Concomitant]
     Indication: BREAST CANCER STAGE II
     Dosage: UNK
  5. SIMVASTATIN [Concomitant]
     Indication: BREAST CANCER STAGE II
     Dosage: UNK

REACTIONS (7)
  - Splenomegaly [Unknown]
  - Cognitive disorder [Unknown]
  - Breast pain [Unknown]
  - Pyrexia [Unknown]
  - Dysphonia [Unknown]
  - Bronchitis [Unknown]
  - Blood pressure increased [Unknown]
